FAERS Safety Report 16769017 (Version 2)
Quarter: 2019Q3

REPORT INFORMATION
  Report Type: Spontaneous
  Country: US (occurrence: US)
  Receive Date: 20190903
  Receipt Date: 20190912
  Transmission Date: 20191005
  Serious: No
  Sender: FDA-Public Use
  Company Number: US-ARRAY-2019-05958

PATIENT

DRUGS (8)
  1. CLONIDINE. [Concomitant]
     Active Substance: CLONIDINE
     Indication: BLOOD PRESSURE ABNORMAL
     Dosage: 0.2 AT 7AM, 3PM, AND
     Dates: start: 2019
  2. MEKTOVI [Suspect]
     Active Substance: BINIMETINIB
     Indication: GASTROINTESTINAL STROMAL TUMOUR
     Dosage: 45 MG, BID
     Dates: start: 20190718
  3. GABAPENTIN. [Concomitant]
     Active Substance: GABAPENTIN
     Indication: NEUROPATHY PERIPHERAL
     Dosage: 1800MG THROUGHOUT THEUNK
     Dates: start: 2015
  4. TRAVATAN [Concomitant]
     Active Substance: TRAVOPROST
     Indication: GLAUCOMA
     Dosage: UNK, QD
     Dates: start: 2011
  5. PROTONIX [OMEPRAZOLE] [Concomitant]
     Active Substance: OMEPRAZOLE
     Indication: GASTRIC DISORDER
     Dosage: UNK, BID BEFORE BREAKFAST AND DINNER
     Dates: start: 201902
  6. BUSPAR [Concomitant]
     Active Substance: BUSPIRONE HYDROCHLORIDE
     Indication: PRODUCT USED FOR UNKNOWN INDICATION
     Dosage: UNK, BID
     Dates: start: 201904
  7. BRAFTOVI [Suspect]
     Active Substance: ENCORAFENIB
     Indication: GASTROINTESTINAL STROMAL TUMOUR
     Dosage: 450 MG, QD
     Dates: start: 20190718
  8. RHOPRESSA [Concomitant]
     Active Substance: NETARSUDIL MESYLATE
     Indication: GLAUCOMA
     Dosage: UNK, QD
     Dates: start: 2011

REACTIONS (4)
  - Diarrhoea [Recovered/Resolved]
  - Acrochordon [Not Recovered/Not Resolved]
  - Product use in unapproved indication [Unknown]
  - Fatigue [Recovered/Resolved]

NARRATIVE: CASE EVENT DATE: 201907
